FAERS Safety Report 24745537 (Version 1)
Quarter: 2024Q4

REPORT INFORMATION
  Report Type: Report from Study
  Country: CN (occurrence: CN)
  Receive Date: 20241218
  Receipt Date: 20241218
  Transmission Date: 20250115
  Serious: Yes (Other)
  Sender: BEIGENE
  Company Number: CN-BEIGENE-BGN-2024-020307

PATIENT

DRUGS (3)
  1. TISLELIZUMAB [Suspect]
     Active Substance: TISLELIZUMAB
     Indication: Angiocentric lymphoma
     Dosage: 200 MILLIGRAM, D2 (EVERY 3 WEEKS) IN INTRODUCTION PERIOD, D1 (EVERY 2 MONTHS) IN MAINTENANCE PERIOD
     Route: 041
  2. GEMCITABINE [Concomitant]
     Active Substance: GEMCITABINE
     Indication: Angiocentric lymphoma
     Dosage: 1 GRAM PER SQUARE METRE, Q3WK, D1, 6-8 CYCLES
  3. OXALIPLATIN [Concomitant]
     Active Substance: OXALIPLATIN
     Indication: Angiocentric lymphoma
     Dosage: 100 MILLIGRAM/SQ. METER, Q3WK, D1, 6-8 CYCLES

REACTIONS (2)
  - Interstitial lung disease [Unknown]
  - Off label use [Unknown]
